FAERS Safety Report 4762193-6 (Version None)
Quarter: 2005Q3

REPORT INFORMATION
  Report Type: 
  Country: None (occurrence: None)
  Receive Date: 20050906
  Receipt Date: 20050906
  Transmission Date: 20060218
  Serious: Yes (Other)
  Sender: FDA-Public Use
  Company Number: None

PATIENT
  Age: 37 Year
  Sex: Female
  Weight: 49.8957 kg

DRUGS (1)
  1. LEVAQUIN [Suspect]
     Indication: CYSTITIS
     Dates: start: 20050301, end: 20050304

REACTIONS (3)
  - BLADDER DISORDER [None]
  - BURNING SENSATION [None]
  - VAGINAL BURNING SENSATION [None]
